FAERS Safety Report 7277650-0 (Version None)
Quarter: 2011Q1

REPORT INFORMATION
  Report Type: 
  Country: None (occurrence: None)
  Receive Date: 20110207
  Receipt Date: 20110201
  Transmission Date: 20110831
  Serious: Yes (Hospitalization, Other)
  Sender: FDA-Public Use
  Company Number: BR-SANOFI-AVENTIS-2011SA006707

PATIENT
  Age: 73 Year
  Sex: Male
  Weight: 85 kg

DRUGS (13)
  1. GALVUS [Concomitant]
     Indication: TYPE 2 DIABETES MELLITUS
     Route: 048
  2. NIAR [Concomitant]
     Indication: TREMOR
     Route: 048
  3. LIPIDIL [Concomitant]
     Route: 048
  4. LANTUS [Suspect]
     Indication: TYPE 2 DIABETES MELLITUS
     Route: 058
  5. AUTOPEN 24 [Suspect]
  6. PROSCAR [Concomitant]
     Indication: PROSTATIC DISORDER
     Route: 048
  7. PRIMIDONE [Concomitant]
     Indication: TREMOR
     Route: 048
  8. ATACAND [Concomitant]
     Route: 048
  9. ATENOLOL [Concomitant]
     Indication: HYPERTENSION
     Route: 048
  10. ACETYLSALICYLIC ACID [Concomitant]
     Indication: PROPHYLAXIS
     Route: 048
  11. ATENOLOL [Concomitant]
     Route: 048
  12. ATORVASTATIN [Concomitant]
     Indication: PROMOTION OF PERIPHERAL CIRCULATION
     Route: 048
  13. ATACAND [Concomitant]
     Indication: HYPERTENSION
     Route: 048

REACTIONS (2)
  - PARALYSIS [None]
  - CEREBROVASCULAR ACCIDENT [None]
